FAERS Safety Report 7236861-0 (Version None)
Quarter: 2011Q1

REPORT INFORMATION
  Report Type: 
  Country: None (occurrence: None)
  Receive Date: 20110120
  Receipt Date: 20110112
  Transmission Date: 20110831
  Serious: Yes (Hospitalization)
  Sender: FDA-Public Use
  Company Number: JP-MERCK-1101USA01667

PATIENT
  Age: 75 Year
  Sex: Male

DRUGS (4)
  1. METFORMIN HCL [Suspect]
     Route: 048
  2. MEVALOTIN [Suspect]
     Route: 048
  3. AMARYL [Suspect]
     Route: 048
  4. JANUVIA [Suspect]
     Indication: TYPE 2 DIABETES MELLITUS
     Route: 048
     Dates: start: 20101106, end: 20110107

REACTIONS (1)
  - INTERSTITIAL LUNG DISEASE [None]
